FAERS Safety Report 7098154-4 (Version None)
Quarter: 2010Q4

REPORT INFORMATION
  Report Type: 
  Country: None (occurrence: None)
  Receive Date: 20101112
  Receipt Date: 20101104
  Transmission Date: 20110411
  Serious: Yes (Other)
  Sender: FDA-Public Use
  Company Number: US-NOVOPROD-317886

PATIENT
  Age: 74 Year
  Sex: Male

DRUGS (10)
  1. NOVOLOG [Suspect]
     Indication: DIABETES MELLITUS
     Dosage: UNK
     Route: 058
  2. HUMIRA [Suspect]
     Indication: PSORIATIC ARTHROPATHY
     Dosage: 40 MG/0.8 ML
     Dates: start: 20100101, end: 20100824
  3. HUMIRA [Suspect]
     Dosage: UNK
     Dates: start: 20101007
  4. PAROXETINE HCL [Concomitant]
     Indication: PRODUCT USED FOR UNKNOWN INDICATION
     Dosage: 20 MG, QD
  5. CLOPIDOGREL [Concomitant]
     Indication: PRODUCT USED FOR UNKNOWN INDICATION
     Dosage: 75 MG, QD
  6. GLIMEPIRIDE W/PIOGLITAZONE [Concomitant]
     Indication: PRODUCT USED FOR UNKNOWN INDICATION
     Dosage: 30 MG, QD
  7. CLONAZEPAM [Concomitant]
     Indication: PRODUCT USED FOR UNKNOWN INDICATION
     Dosage: 4 MG, QD
  8. ROSUVASTATIN [Concomitant]
     Indication: BLOOD CHOLESTEROL INCREASED
     Dosage: 20 MG, QD
  9. FOSINOPRIL SODIUM [Concomitant]
     Indication: PRODUCT USED FOR UNKNOWN INDICATION
     Dosage: .5 TAB, QD
  10. INSULIN DETEMIR [Concomitant]
     Indication: DIABETES MELLITUS
     Dosage: 6 U, QD AT NIGHT
     Route: 058

REACTIONS (6)
  - COUGH [None]
  - DYSPNOEA [None]
  - LIP SWELLING [None]
  - PRURITUS [None]
  - RASH GENERALISED [None]
  - SWOLLEN TONGUE [None]
